FAERS Safety Report 4790301-X (Version None)
Quarter: 2005Q4

REPORT INFORMATION
  Report Type: 
  Country: None (occurrence: None)
  Receive Date: 20051005
  Receipt Date: 20050914
  Transmission Date: 20060501
  Serious: Yes (Other)
  Sender: FDA-Public Use
  Company Number: USA0509108598

PATIENT
  Age: 45 Year
  Sex: Female

DRUGS (3)
  1. STRATTERA [Suspect]
     Dosage: 120 MG
     Dates: start: 20050906, end: 20050914
  2. CYMBALTA [Concomitant]
  3. RESTORIL [Concomitant]

REACTIONS (11)
  - CONFUSIONAL STATE [None]
  - DIZZINESS [None]
  - FATIGUE [None]
  - GRAND MAL CONVULSION [None]
  - HEADACHE [None]
  - HYPERTENSIVE ENCEPHALOPATHY [None]
  - INSOMNIA [None]
  - MYALGIA [None]
  - PARTIAL SEIZURES [None]
  - PRESCRIBED OVERDOSE [None]
  - SPEECH DISORDER [None]
